FAERS Safety Report 7572896-6 (Version None)
Quarter: 2011Q2

REPORT INFORMATION
  Report Type: 
  Country: None (occurrence: None)
  Receive Date: 20110627
  Receipt Date: 20110613
  Transmission Date: 20111010
  Serious: Yes (Other)
  Sender: FDA-Public Use
  Company Number: US-ELI_LILLY_AND_COMPANY-US201106004040

PATIENT
  Sex: Male
  Weight: 108 kg

DRUGS (8)
  1. METHOTREXATE [Concomitant]
     Indication: ARTHRITIS
     Dosage: 15 MG, WEEKLY (1/W)
  2. LYRICA [Concomitant]
     Indication: PAIN
     Dosage: 150 MG, BID
     Route: 048
     Dates: start: 20060101
  3. VIAGRA [Concomitant]
     Indication: ERECTILE DYSFUNCTION
     Dosage: 50 MG, PRN
     Route: 048
  4. LYRICA [Concomitant]
     Dosage: UNK, UNKNOWN
     Dates: start: 20110301
  5. AMITRIPTYLINE HCL [Concomitant]
     Indication: PAIN
     Dosage: 200 MG, QD
  6. SPIRIVA [Concomitant]
     Indication: CHRONIC OBSTRUCTIVE PULMONARY DISEASE
     Dosage: 1 DF, QD
     Route: 055
  7. CYMBALTA [Suspect]
     Dosage: UNK, UNKNOWN
  8. DICLOFENAC SODIUM [Concomitant]
     Dosage: 75 MG, BID

REACTIONS (2)
  - RHEUMATOID ARTHRITIS [None]
  - ERECTILE DYSFUNCTION [None]
